FAERS Safety Report 16540694 (Version 1)
Quarter: 2019Q3

REPORT INFORMATION
  Report Type: Spontaneous
  Country: US (occurrence: US)
  Receive Date: 20190707
  Receipt Date: 20190707
  Transmission Date: 20191004
  Serious: Yes (Other)
  Sender: FDA-Public Use
  Company Number: None

PATIENT
  Age: 42 Year
  Sex: Female
  Weight: 74.25 kg

DRUGS (5)
  1. CYMBALTA [Concomitant]
     Active Substance: DULOXETINE HYDROCHLORIDE
  2. WALGREENS SODIUM CHLORIDE OPHTHALMIC 5 PERCENT HYPERTONICITY EYE [Suspect]
     Active Substance: SODIUM CHLORIDE
     Indication: CORNEAL EROSION
     Dosage: ?          QUANTITY:3.5 OUNCE(S);?
     Route: 047
     Dates: start: 20190701, end: 20190702
  3. LOTEMAX [Concomitant]
     Active Substance: LOTEPREDNOL ETABONATE
  4. FRESH KOTE [Concomitant]
  5. CLARITIN [Concomitant]
     Active Substance: LORATADINE

REACTIONS (4)
  - Eye pain [None]
  - Instillation site pain [None]
  - Drug ineffective [None]
  - Eye irritation [None]

NARRATIVE: CASE EVENT DATE: 20190701
